FAERS Safety Report 21280911 (Version 2)
Quarter: 2022Q3

REPORT INFORMATION
  Report Type: Spontaneous
  Country: US (occurrence: US)
  Receive Date: 20220901
  Receipt Date: 20220907
  Transmission Date: 20221027
  Serious: No
  Sender: FDA-Public Use
  Company Number: US-PFIZER INC-PV202200041607

PATIENT
  Age: 59 Year
  Sex: Female
  Weight: 63.492 kg

DRUGS (2)
  1. LATANOPROST [Suspect]
     Active Substance: LATANOPROST
     Indication: Glaucoma
     Dosage: 0.005 %, 1X/DAY (ONE DROP DAILY)
  2. HYPROMELLOSE 2910 (4000 MPA.S) [Concomitant]
     Active Substance: HYPROMELLOSE 2910 (4000 MPA.S)
     Dosage: UNK
     Dates: start: 2014, end: 2019

REACTIONS (1)
  - Eye irritation [Unknown]
